FAERS Safety Report 11370459 (Version 2)
Quarter: 2015Q4

REPORT INFORMATION
  Report Type: Spontaneous
  Country: US (occurrence: US)
  Receive Date: 20150812
  Receipt Date: 20151016
  Transmission Date: 20160304
  Serious: Yes (Hospitalization)
  Sender: FDA-Public Use
  Company Number: US-MALLINCKRODT-T201503690

PATIENT
  Age: 55 Year
  Sex: Female
  Weight: 159 kg

DRUGS (12)
  1. LEVEMIR [Concomitant]
     Active Substance: INSULIN DETEMIR
  2. TOPROL XL [Concomitant]
     Active Substance: METOPROLOL SUCCINATE
  3. PREDNISONE. [Concomitant]
     Active Substance: PREDNISONE
  4. HUMALOG [Concomitant]
     Active Substance: INSULIN LISPRO
  5. COREG [Concomitant]
     Active Substance: CARVEDILOL
  6. H.P. ACTHAR [Suspect]
     Active Substance: CORTICOTROPIN
     Indication: RHEUMATOID ARTHRITIS
     Dosage: 80 UNITS/ML, 1ML EVERY 2 WEEKS
     Route: 065
     Dates: start: 2014, end: 201505
  7. LISINOPRIL. [Concomitant]
     Active Substance: LISINOPRIL
  8. H.P. ACTHAR [Suspect]
     Active Substance: CORTICOTROPIN
     Dosage: 80 UNITS/ML, 1ML EVERY 2 WEEKS
     Route: 065
     Dates: start: 201506
  9. FENTANYL. [Concomitant]
     Active Substance: FENTANYL
  10. VITAMIN D [Concomitant]
     Active Substance: CHOLECALCIFEROL
  11. SYNTHROID [Concomitant]
     Active Substance: LEVOTHYROXINE SODIUM
  12. OXYCODONE [Concomitant]
     Active Substance: OXYCODONE

REACTIONS (1)
  - Diverticulitis [Recovered/Resolved]

NARRATIVE: CASE EVENT DATE: 201505
